FAERS Safety Report 7017932-0 (Version None)
Quarter: 2010Q3

REPORT INFORMATION
  Report Type: 
  Country: None (occurrence: None)
  Receive Date: 20100928
  Receipt Date: 20100921
  Transmission Date: 20110219
  Serious: Yes (Life-Threatening)
  Sender: FDA-Public Use
  Company Number: JP-SANOFI-AVENTIS-2010SA050898

PATIENT
  Age: 56 Year
  Sex: Female
  Weight: 41.2 kg

DRUGS (10)
  1. CLEXANE [Suspect]
     Route: 058
     Dates: start: 20100604, end: 20100609
  2. CEFAZOLIN SODIUM [Suspect]
     Indication: PROPHYLAXIS
     Route: 051
     Dates: start: 20100602, end: 20100605
  3. NSAID'S [Concomitant]
  4. HEPARIN CALCIUM [Concomitant]
     Indication: THROMBOSIS PROPHYLAXIS
     Dosage: DOSE:5000 UNIT(S)
     Route: 051
     Dates: start: 20100602, end: 20100603
  5. PENTAZOCINE LACTATE [Concomitant]
     Indication: PAIN PROPHYLAXIS
     Route: 051
     Dates: start: 20100602, end: 20100603
  6. ATARAX [Concomitant]
     Indication: PAIN PROPHYLAXIS
     Route: 051
     Dates: start: 20100602, end: 20100603
  7. PRIMPERAN TAB [Concomitant]
     Route: 051
     Dates: start: 20100602, end: 20100603
  8. VOLTAREN [Concomitant]
     Indication: PAIN PROPHYLAXIS
     Route: 054
     Dates: start: 20100603, end: 20100604
  9. FERROMIA [Concomitant]
     Indication: ANAEMIA
     Route: 048
     Dates: start: 20100606, end: 20100613
  10. LOXONIN [Concomitant]
     Indication: PAIN PROPHYLAXIS
     Route: 048
     Dates: start: 20100605, end: 20100609

REACTIONS (2)
  - ALANINE AMINOTRANSFERASE INCREASED [None]
  - ASPARTATE AMINOTRANSFERASE INCREASED [None]
